FAERS Safety Report 11390512 (Version 1)
Quarter: 2015Q3

REPORT INFORMATION
  Report Type: Spontaneous
  Country: US (occurrence: US)
  Receive Date: 20150818
  Receipt Date: 20150818
  Transmission Date: 20151125
  Serious: No
  Sender: FDA-Public Use
  Company Number: US-ROCHE-1399202

PATIENT
  Sex: Male

DRUGS (4)
  1. RIBASPHERE [Suspect]
     Active Substance: RIBAVIRIN
     Indication: CHRONIC HEPATITIS C
     Dosage: 1200 MG/DAY IN DIVIDED DOSES 600/400
     Route: 065
     Dates: start: 20140426
  2. SOVALDI [Suspect]
     Active Substance: SOFOSBUVIR
     Indication: CHRONIC HEPATITIS C
     Route: 065
     Dates: start: 20140426
  3. RIBASPHERE [Suspect]
     Active Substance: RIBAVIRIN
     Dosage: 1200 MG/DAY IN DIVIDED DOSES 600/400
     Route: 065
     Dates: start: 20140426
  4. PEGASYS [Suspect]
     Active Substance: PEGINTERFERON ALFA-2A
     Indication: CHRONIC HEPATITIS C
     Route: 058
     Dates: start: 20140426

REACTIONS (3)
  - Drug dose omission [Unknown]
  - Dizziness [Unknown]
  - Influenza like illness [Unknown]
